FAERS Safety Report 10464038 (Version 1)
Quarter: 2014Q3

REPORT INFORMATION
  Report Type: Spontaneous
  Country: CH (occurrence: CH)
  Receive Date: 20140919
  Receipt Date: 20140919
  Transmission Date: 20150326
  Serious: Yes (Other)
  Sender: FDA-Public Use
  Company Number: CH-TEVA-509817ISR

PATIENT
  Age: 46 Year
  Sex: Male

DRUGS (1)
  1. TORASEMID-MEPHA [Suspect]
     Active Substance: TORSEMIDE
     Route: 048
     Dates: start: 201407, end: 2014

REACTIONS (7)
  - Oliguria [Recovered/Resolved]
  - Abdominal distension [Recovered/Resolved]
  - Therapeutic response changed [Recovered/Resolved]
  - Feeling hot [Unknown]
  - Ascites [Recovered/Resolved]
  - Product substitution issue [None]
  - Peripheral swelling [Recovered/Resolved]

NARRATIVE: CASE EVENT DATE: 2014
